FAERS Safety Report 5573681-7 (Version None)
Quarter: 2007Q4

REPORT INFORMATION
  Report Type: 
  Country: None (occurrence: None)
  Receive Date: 20071226
  Receipt Date: 20071217
  Transmission Date: 20080405
  Serious: Yes (Hospitalization)
  Sender: FDA-Public Use
  Company Number: CA-JNJFOC-20071204520

PATIENT
  Sex: Male

DRUGS (1)
  1. REMICADE [Suspect]
     Indication: CROHN'S DISEASE
     Dosage: BETWWEN 16TH AND 17TH INFUSION
     Route: 042

REACTIONS (2)
  - ACCIDENTAL NEEDLE STICK [None]
  - CELLULITIS [None]
